FAERS Safety Report 19051612 (Version 4)
Quarter: 2022Q1

REPORT INFORMATION
  Report Type: Spontaneous
  Country: US (occurrence: US)
  Receive Date: 20210324
  Receipt Date: 20220119
  Transmission Date: 20220423
  Serious: No
  Sender: FDA-Public Use
  Company Number: US-SA-SAC20210323001112

PATIENT
  Age: 64 Year
  Sex: Female

DRUGS (4)
  1. DUPIXENT [Suspect]
     Active Substance: DUPILUMAB
     Indication: Psoriasis
     Dosage: 300 MG, QOW
     Route: 058
     Dates: start: 20191226
  2. METOPROLOL SUCCINATE [Concomitant]
     Active Substance: METOPROLOL SUCCINATE
     Dosage: UNK
  3. PRASUGREL HCL [Concomitant]
     Dosage: 10 MG
  4. COVID-19 VACCINE [Concomitant]
     Indication: Immunisation
     Dosage: UNK

REACTIONS (6)
  - Cardiac disorder [Unknown]
  - Erythema [Unknown]
  - Arthropod bite [Unknown]
  - Injection site pain [Unknown]
  - Product use in unapproved indication [Unknown]
  - Cardiac operation [Unknown]

NARRATIVE: CASE EVENT DATE: 20210701
